FAERS Safety Report 6543540-1 (Version None)
Quarter: 2010Q1

REPORT INFORMATION
  Report Type: 
  Country: None (occurrence: None)
  Receive Date: 20100115
  Receipt Date: 20091106
  Transmission Date: 20100710
  Serious: Yes (Other)
  Sender: FDA-Public Use
  Company Number: 2009279050

PATIENT
  Sex: Female

DRUGS (1)
  1. HALCION [Suspect]
     Indication: SOMNOLENCE
     Dosage: 0.25 MG

REACTIONS (1)
  - SEDATION [None]
